FAERS Safety Report 18256577 (Version 2)
Quarter: 2020Q4

REPORT INFORMATION
  Report Type: Report from Study
  Country: US (occurrence: US)
  Receive Date: 20200911
  Receipt Date: 20201006
  Transmission Date: 20210113
  Serious: No
  Sender: FDA-Public Use
  Company Number: US-ACADIA PHARMACEUTICALS INC.-ACA-2020-PIM-002781

PATIENT
  Sex: Male

DRUGS (1)
  1. NUPLAZID [Suspect]
     Active Substance: PIMAVANSERIN TARTRATE
     Indication: PARKINSON^S DISEASE
     Dosage: 34 MILLIGRAM, QD
     Route: 048
     Dates: start: 20200713

REACTIONS (7)
  - Drug ineffective [Unknown]
  - Hallucination [Not Recovered/Not Resolved]
  - Anxiety [Unknown]
  - Cognitive disorder [Unknown]
  - Agitation [Unknown]
  - Delirium [Unknown]
  - Hallucination [Unknown]
